FAERS Safety Report 7973601-1 (Version None)
Quarter: 2011Q4

REPORT INFORMATION
  Report Type: 
  Country: None (occurrence: None)
  Receive Date: 20111209
  Receipt Date: 20111128
  Transmission Date: 20120403
  Serious: Yes (Hospitalization)
  Sender: FDA-Public Use
  Company Number: 2011SP055681

PATIENT
  Age: 22 Year
  Sex: Female

DRUGS (1)
  1. KEIMAX (CEFTIBUTEN /01166201/) [Suspect]
     Indication: RESPIRATORY TRACT INFECTION
     Dosage: 400 MG;QD
     Dates: start: 20111120, end: 20111124

REACTIONS (6)
  - ERYTHEMA [None]
  - PRURITUS [None]
  - URTICARIA [None]
  - DYSPNOEA [None]
  - RASH [None]
  - HYPERSENSITIVITY [None]
